FAERS Safety Report 5242273-1 (Version None)
Quarter: 2007Q1

REPORT INFORMATION
  Report Type: 
  Country: None (occurrence: None)
  Receive Date: 20070221
  Receipt Date: 20070212
  Transmission Date: 20070707
  Serious: Yes (Death, Hospitalization)
  Sender: FDA-Public Use
  Company Number: FR-JNJFOC-20070102924

PATIENT
  Age: 76 Year
  Sex: Male

DRUGS (14)
  1. REMICADE [Suspect]
     Route: 042
  2. REMICADE [Suspect]
     Route: 042
  3. REMICADE [Suspect]
     Route: 042
  4. REMICADE [Suspect]
     Route: 042
  5. REMICADE [Suspect]
     Indication: CROHN'S DISEASE
     Route: 042
  6. CARDARONE [Concomitant]
  7. PAROXETINE HCL [Concomitant]
     Route: 065
  8. DOMPERIDONE [Concomitant]
     Route: 065
  9. OROCAL D3 [Concomitant]
     Route: 065
  10. NOCTRAN [Concomitant]
     Route: 065
  11. IMODIUM [Concomitant]
     Route: 065
  12. LANTUS [Concomitant]
     Route: 065
  13. IMUREL [Concomitant]
     Indication: CROHN'S DISEASE
     Route: 065
  14. SOLUPRED [Concomitant]
     Indication: CROHN'S DISEASE
     Route: 065

REACTIONS (5)
  - ASCITES [None]
  - BRONCHOPNEUMONIA [None]
  - HEPATIC CIRRHOSIS [None]
  - RESPIRATORY DISTRESS [None]
  - SEPTIC SHOCK [None]
